FAERS Safety Report 12977363 (Version 1)
Quarter: 2016Q4

REPORT INFORMATION
  Report Type: Spontaneous
  Country: US (occurrence: US)
  Receive Date: 20161128
  Receipt Date: 20161128
  Transmission Date: 20170207
  Serious: Yes (Hospitalization)
  Sender: FDA-Public Use
  Company Number: US-CIPLA LTD.-2016US21773

PATIENT

DRUGS (4)
  1. ALENDRONATE [Suspect]
     Active Substance: ALENDRONATE SODIUM
     Indication: OSTEOPOROSIS
     Dosage: 70 MG, ONCE A WEEK
     Route: 048
  2. WINTERGREEN MINT ALTOIDS [Concomitant]
     Indication: DRY MOUTH
     Dosage: UNK, EVERY NIGHT BEFORE BED
     Route: 065
  3. WINTERGREEN MINT ALTOIDS [Concomitant]
     Dosage: UNK, EARLY IN THE MORNING
     Route: 065
  4. REMERON [Concomitant]
     Active Substance: MIRTAZAPINE
     Dosage: 15 MG, UNK
     Route: 065

REACTIONS (6)
  - Haematochezia [Unknown]
  - Weight increased [Unknown]
  - Urinary tract infection [Recovered/Resolved]
  - Drug dose omission [Unknown]
  - Hypertension [Unknown]
  - Malaise [Unknown]

NARRATIVE: CASE EVENT DATE: 201611
